FAERS Safety Report 9526155 (Version 1)
Quarter: 2013Q3

REPORT INFORMATION
  Report Type: Spontaneous
  Country: US (occurrence: US)
  Receive Date: 20130916
  Receipt Date: 20130916
  Transmission Date: 20140515
  Serious: No
  Sender: FDA-Public Use
  Company Number: US-B.I. PHARMACEUTICALS,INC./RIDGEFIELD-2013-BI-27493BP

PATIENT
  Age: 58 Year
  Sex: Male
  Weight: 104 kg

DRUGS (13)
  1. COMBIVENT [Suspect]
     Indication: ASTHMA
     Dosage: STRENGTH: 20 MCG / 100 MCG; DAILY DOSE: 80 MCG/ 400 MCG
     Route: 055
     Dates: start: 201308
  2. LOPRESSOR [Concomitant]
     Dosage: 50 MG
     Route: 048
  3. MIRALAX [Concomitant]
     Route: 048
  4. ENALAPRIL/HYDROCHLOROTHIAZIDE [Concomitant]
     Dosage: STRENGTH: 20/25 MG;
     Route: 048
  5. ZOCOR [Concomitant]
     Route: 048
  6. VICODIN HP [Concomitant]
     Dosage: STRENGTH: 10/660 MG;
     Route: 048
  7. NISOLDIPINE [Concomitant]
     Route: 048
  8. FENTANYL [Concomitant]
     Dosage: (PATCH)
     Route: 061
  9. XANAX [Concomitant]
     Route: 048
  10. NEXIUM [Concomitant]
     Route: 048
  11. POTASSIUM [Concomitant]
     Route: 048
  12. TRICOR [Concomitant]
     Route: 048
  13. TAMSULOSIN [Concomitant]
     Route: 048

REACTIONS (2)
  - Dyspnoea [Recovered/Resolved]
  - Off label use [Not Recovered/Not Resolved]
